FAERS Safety Report 17567100 (Version 1)
Quarter: 2020Q1

REPORT INFORMATION
  Report Type: Spontaneous
  Country: FR (occurrence: FR)
  Receive Date: 20200320
  Receipt Date: 20200320
  Transmission Date: 20200409
  Serious: Yes (Other)
  Sender: FDA-Public Use
  Company Number: FR-SA-2020SA069354

PATIENT
  Age: 53 Year
  Sex: Male

DRUGS (8)
  1. METFORMINE [METFORMIN] [Concomitant]
     Active Substance: METFORMIN HYDROCHLORIDE
  2. LOVENOX [Concomitant]
     Active Substance: ENOXAPARIN SODIUM
  3. CLOXACILLIN [Suspect]
     Active Substance: CLOXACILLIN
     Indication: ARTHRITIS
     Dosage: 12 G, QD
     Route: 042
     Dates: start: 20200216, end: 20200226
  4. RIFAMPICIN [Suspect]
     Active Substance: RIFAMPIN
     Indication: ARTHRITIS
     Dosage: 1200 MG, QD
     Route: 042
     Dates: start: 20200216, end: 20200226
  5. MORPHINE [Concomitant]
     Active Substance: MORPHINE
  6. ZOPICLONE [Concomitant]
     Active Substance: ZOPICLONE
  7. LACTULOSE. [Concomitant]
     Active Substance: LACTULOSE
  8. PARACETAMOL [Concomitant]
     Active Substance: ACETAMINOPHEN

REACTIONS (1)
  - Urticaria [Recovered/Resolved]

NARRATIVE: CASE EVENT DATE: 20200225
